FAERS Safety Report 8848854 (Version 1)
Quarter: 2012Q4

REPORT INFORMATION
  Report Type: Spontaneous
  Country: GB (occurrence: None)
  Receive Date: 20121016
  Receipt Date: 20121016
  Transmission Date: 20130627
  Serious: Yes (Other)
  Sender: FDA-Public Use
  Company Number: GER/UKI/12/0026191

PATIENT
  Age: 63 Year
  Sex: Female
  Weight: 64 kg

DRUGS (5)
  1. ATORVASTATIN [Suspect]
     Indication: HIGH CHOLESTEROL
     Route: 048
     Dates: start: 20120913, end: 20120921
  2. ADCAL-D3(LEKOVIT CA) [Concomitant]
  3. NAPROXEN(NAPROXEN) [Concomitant]
  4. QUININE BISULPHATE(QUININE BISULFATE) [Concomitant]
  5. OMEPRAZOLE (OMEPRAZOLE) [Concomitant]

REACTIONS (3)
  - Vasculitic rash [None]
  - Muscle spasms [None]
  - Flatulence [None]
